FAERS Safety Report 24062102 (Version 1)
Quarter: 2024Q3

REPORT INFORMATION
  Report Type: Spontaneous
  Country: CN (occurrence: CN)
  Receive Date: 20240708
  Receipt Date: 20240708
  Transmission Date: 20241017
  Serious: Yes (Hospitalization)
  Sender: NOVARTIS
  Company Number: CN-002147023-NVSC2024CN140713

PATIENT
  Age: 61 Year
  Sex: Male
  Weight: 40.5 kg

DRUGS (1)
  1. TRILEPTAL [Suspect]
     Active Substance: OXCARBAZEPINE
     Indication: Depression
     Dosage: 0.150 G, BID
     Route: 048
     Dates: start: 20240516, end: 20240701

REACTIONS (5)
  - Rash [Recovered/Resolved]
  - Face oedema [Recovered/Resolved]
  - Pruritus [Recovered/Resolved]
  - Localised oedema [Recovered/Resolved]
  - Hypersensitivity [Recovered/Resolved]

NARRATIVE: CASE EVENT DATE: 20240623
